FAERS Safety Report 16953009 (Version 1)
Quarter: 2019Q4

REPORT INFORMATION
  Report Type: Spontaneous
  Country: US (occurrence: US)
  Receive Date: 20191023
  Receipt Date: 20191023
  Transmission Date: 20200122
  Serious: No
  Sender: FDA-Public Use
  Company Number: US-BAYER-2019-189410

PATIENT
  Age: 3 Year
  Sex: Male

DRUGS (1)
  1. CLARITIN [Suspect]
     Active Substance: LORATADINE
     Dosage: UNK
     Route: 048

REACTIONS (3)
  - Erythema [Recovered/Resolved]
  - Accidental exposure to product by child [Recovered/Resolved]
  - Failure of child resistant mechanism for pharmaceutical product [Recovered/Resolved]

NARRATIVE: CASE EVENT DATE: 20191018
